FAERS Safety Report 4383716-5 (Version None)
Quarter: 2004Q2

REPORT INFORMATION
  Report Type: 
  Country: None (occurrence: None)
  Receive Date: 20040608
  Receipt Date: 20031117
  Transmission Date: 20050107
  Serious: Yes (Life-Threatening, Hospitalization)
  Sender: FDA-Public Use
  Company Number: 200314317BCC

PATIENT
  Age: 65 Year
  Sex: Male
  Weight: 63.5036 kg

DRUGS (2)
  1. ALEVE [Suspect]
     Indication: PAIN
     Dosage: 440 MG, ORAL
     Route: 048
     Dates: start: 20031113
  2. PLAVIX [Concomitant]

REACTIONS (7)
  - ANAPHYLACTIC SHOCK [None]
  - BLOOD PRESSURE DECREASED [None]
  - DIZZINESS [None]
  - DYSPNOEA [None]
  - PARAESTHESIA [None]
  - THROAT TIGHTNESS [None]
  - VISION BLURRED [None]
